FAERS Safety Report 19128096 (Version 1)
Quarter: 2021Q2

REPORT INFORMATION
  Report Type: Spontaneous
  Country: US (occurrence: US)
  Receive Date: 20210413
  Receipt Date: 20210413
  Transmission Date: 20210717
  Serious: Yes (Hospitalization)
  Sender: FDA-Public Use
  Company Number: None

PATIENT
  Age: 61 Year
  Sex: Female

DRUGS (7)
  1. GABAPENTIN. [Concomitant]
     Active Substance: GABAPENTIN
  2. IPRATROPIUM [Concomitant]
     Active Substance: IPRATROPIUM
  3. SIMVASTATIN. [Concomitant]
     Active Substance: SIMVASTATIN
  4. ACYCLOVIR. [Concomitant]
     Active Substance: ACYCLOVIR
  5. DIMETHYL FUMARATE [Suspect]
     Active Substance: DIMETHYL FUMARATE
     Indication: MULTIPLE SCLEROSIS
     Route: 048
     Dates: start: 20200908
  6. LOSARTAN. [Concomitant]
     Active Substance: LOSARTAN
  7. QBREXZA [Concomitant]
     Active Substance: GLYCOPYRRONIUM TOSYLATE

REACTIONS (1)
  - Hip surgery [None]

NARRATIVE: CASE EVENT DATE: 20210413
